FAERS Safety Report 7977012 (Version 22)
Quarter: 2013Q4

REPORT INFORMATION
  Report Type: Spontaneous
  Country: US (occurrence: US)
  Receive Date: 20110607
  Receipt Date: 20131129
  Transmission Date: 20140711
  Serious: Yes (Hospitalization, Disabling, Other)
  Sender: FDA-Public Use
  Company Number: US-ASTRAZENECA-2011SE32254

PATIENT
  Age: 54 Year
  Sex: Female
  Weight: 123.8 kg

DRUGS (100)
  1. NEXIUM [Suspect]
     Indication: GASTROOESOPHAGEAL REFLUX DISEASE
     Route: 048
     Dates: start: 20080307
  2. NEXIUM [Suspect]
     Indication: DYSPEPSIA
     Route: 048
     Dates: start: 20080307
  3. NEXIUM [Suspect]
     Indication: DYSPEPSIA
     Route: 048
     Dates: start: 20080307
  4. NEXIUM [Suspect]
     Indication: GASTROOESOPHAGEAL REFLUX DISEASE
     Route: 048
     Dates: start: 20080504
  5. NEXIUM [Suspect]
     Indication: DYSPEPSIA
     Route: 048
     Dates: start: 20080504
  6. NEXIUM [Suspect]
     Indication: DYSPEPSIA
     Route: 048
     Dates: start: 20080504
  7. NEXIUM [Suspect]
     Indication: GASTROOESOPHAGEAL REFLUX DISEASE
     Route: 048
     Dates: start: 20080724
  8. NEXIUM [Suspect]
     Indication: DYSPEPSIA
     Route: 048
     Dates: start: 20080724
  9. NEXIUM [Suspect]
     Indication: DYSPEPSIA
     Route: 048
     Dates: start: 20080724
  10. NEXIUM [Suspect]
     Indication: GASTROOESOPHAGEAL REFLUX DISEASE
     Route: 048
     Dates: start: 20090223
  11. NEXIUM [Suspect]
     Indication: DYSPEPSIA
     Route: 048
     Dates: start: 20090223
  12. NEXIUM [Suspect]
     Indication: DYSPEPSIA
     Route: 048
     Dates: start: 20090223
  13. NEXIUM [Suspect]
     Indication: GASTROOESOPHAGEAL REFLUX DISEASE
     Route: 048
     Dates: start: 20090605
  14. NEXIUM [Suspect]
     Indication: DYSPEPSIA
     Route: 048
     Dates: start: 20090605
  15. NEXIUM [Suspect]
     Indication: DYSPEPSIA
     Route: 048
     Dates: start: 20090605
  16. NEXIUM [Suspect]
     Indication: GASTROOESOPHAGEAL REFLUX DISEASE
     Route: 048
     Dates: start: 200908, end: 201104
  17. NEXIUM [Suspect]
     Indication: DYSPEPSIA
     Route: 048
     Dates: start: 200908, end: 201104
  18. NEXIUM [Suspect]
     Indication: DYSPEPSIA
     Route: 048
     Dates: start: 200908, end: 201104
  19. NEXIUM [Suspect]
     Indication: GASTROOESOPHAGEAL REFLUX DISEASE
     Route: 048
     Dates: start: 20100322
  20. NEXIUM [Suspect]
     Indication: DYSPEPSIA
     Route: 048
     Dates: start: 20100322
  21. NEXIUM [Suspect]
     Indication: DYSPEPSIA
     Route: 048
     Dates: start: 20100322
  22. NEXIUM [Suspect]
     Indication: GASTROOESOPHAGEAL REFLUX DISEASE
     Route: 048
     Dates: start: 20100507
  23. NEXIUM [Suspect]
     Indication: DYSPEPSIA
     Route: 048
     Dates: start: 20100507
  24. NEXIUM [Suspect]
     Indication: DYSPEPSIA
     Route: 048
     Dates: start: 20100507
  25. NEXIUM [Suspect]
     Indication: GASTROOESOPHAGEAL REFLUX DISEASE
     Route: 048
     Dates: start: 20110504
  26. NEXIUM [Suspect]
     Indication: DYSPEPSIA
     Route: 048
     Dates: start: 20110504
  27. NEXIUM [Suspect]
     Indication: DYSPEPSIA
     Route: 048
     Dates: start: 20110504
  28. PRILOSEC [Suspect]
     Route: 048
     Dates: start: 199709
  29. TOPROL [Concomitant]
     Indication: HYPERTENSION
  30. TOPROL [Concomitant]
     Indication: HYPERTENSION
     Dates: start: 20090223
  31. TOPROL [Concomitant]
     Indication: HYPERTENSION
     Dates: start: 20100315
  32. TOPROL [Concomitant]
     Indication: HYPERTENSION
     Dates: start: 20080724
  33. TOPROL [Concomitant]
     Indication: HYPERTENSION
     Dates: start: 20110504
  34. PROZAC [Concomitant]
     Indication: EMOTIONAL DISTRESS
     Dates: start: 20090506
  35. PROZAC [Concomitant]
     Indication: EMOTIONAL DISTRESS
     Dates: start: 20090223
  36. PROZAC [Concomitant]
     Indication: EMOTIONAL DISTRESS
     Dates: start: 20100315
  37. PROZAC [Concomitant]
     Indication: EMOTIONAL DISTRESS
     Dates: start: 20080724
  38. PROZAC [Concomitant]
     Indication: EMOTIONAL DISTRESS
     Dates: start: 20110504
  39. ASPIRIN [Concomitant]
  40. ASPIRIN [Concomitant]
     Dates: start: 20090223
  41. ASPIRIN [Concomitant]
     Dates: start: 20110504
  42. CLONAZEPAM [Concomitant]
     Indication: ANXIETY
     Dates: start: 20090720
  43. CLONAZEPAM [Concomitant]
     Indication: EMOTIONAL DISTRESS
     Dates: start: 20090720
  44. CLONAZEPAM [Concomitant]
     Indication: NERVOUSNESS
     Dates: start: 20090720
  45. CLONAZEPAM [Concomitant]
     Indication: ANXIETY
     Dosage: 1 MG TAKEN WHEN NEEDED
     Dates: start: 20110504
  46. CLONAZEPAM [Concomitant]
     Indication: EMOTIONAL DISTRESS
     Dosage: 1 MG TAKEN WHEN NEEDED
     Dates: start: 20110504
  47. CLONAZEPAM [Concomitant]
     Indication: NERVOUSNESS
     Dosage: 1 MG TAKEN WHEN NEEDED
     Dates: start: 20110504
  48. CLONAZEPAM [Concomitant]
     Indication: ANXIETY
     Dosage: 1/2 TO 1 TAB PO DAILY PRN
  49. CLONAZEPAM [Concomitant]
     Indication: EMOTIONAL DISTRESS
     Dosage: 1/2 TO 1 TAB PO DAILY PRN
  50. CLONAZEPAM [Concomitant]
     Indication: NERVOUSNESS
     Dosage: 1/2 TO 1 TAB PO DAILY PRN
  51. ALPRAZOLAM [Concomitant]
     Route: 048
     Dates: start: 20100317
  52. ROLAIDS [Concomitant]
  53. BONIVA [Concomitant]
     Indication: OSTEOPOROSIS
     Dosage: ONCE A MONTH
     Dates: start: 20101026
  54. BONIVA [Concomitant]
     Indication: OSTEOPOROSIS
     Dates: start: 20090223
  55. BONIVA [Concomitant]
     Indication: OSTEOPOROSIS
     Dosage: ONCE A MONTH
     Dates: start: 20110504
  56. MAXZIDE [Concomitant]
     Dates: start: 20090605
  57. MAXZIDE [Concomitant]
     Dates: start: 20090223
  58. MAXZIDE [Concomitant]
     Dosage: 75 MG 1/2 TAB DAILY
     Dates: start: 20100322
  59. MAXZIDE [Concomitant]
     Dates: start: 20080724
  60. MAXZIDE [Concomitant]
     Dates: start: 20110504
  61. LOVAZA [Concomitant]
     Dates: start: 20101026
  62. LOVAZA [Concomitant]
     Dates: start: 20090223
  63. LOVAZA [Concomitant]
     Dates: start: 20100315
  64. LOVAZA [Concomitant]
     Dates: start: 20080724
  65. LOVAZA [Concomitant]
     Dates: start: 20110504
  66. MIRAPEX [Concomitant]
     Indication: RESTLESS LEGS SYNDROME
     Dates: start: 20101026
  67. MIRAPEX [Concomitant]
     Indication: RESTLESS LEGS SYNDROME
     Dates: start: 20090223
  68. MIRAPEX [Concomitant]
     Indication: RESTLESS LEGS SYNDROME
     Dates: start: 20100315
  69. MIRAPEX [Concomitant]
     Indication: RESTLESS LEGS SYNDROME
     Dates: start: 20110504
  70. MIRAPEX [Concomitant]
     Indication: RESTLESS LEGS SYNDROME
  71. HYDROCODONE [Concomitant]
     Indication: PAIN
     Dates: start: 20101026
  72. HYDROCODONE [Concomitant]
     Indication: PAIN
     Dosage: 5 MG/500 MG
     Dates: start: 20090223
  73. HYDROCODONE [Concomitant]
     Indication: PAIN
     Dates: start: 20100315
  74. HYDROCODONE [Concomitant]
     Indication: PAIN
     Dosage: 5/500 MG TAKEN WHEN NEEDED
     Dates: start: 20110504
  75. HYDROCODONE [Concomitant]
     Indication: PAIN
     Dosage: 7.5 MG WHEN NEEDED
  76. GARLIC [Concomitant]
     Dosage: ONE A DAY
     Dates: start: 20090506
  77. GARLIC [Concomitant]
     Dates: start: 20120110
  78. CELEBREX [Concomitant]
     Dates: start: 20090605
  79. CELEBREX [Concomitant]
     Dates: start: 20090223
  80. CELEBREX [Concomitant]
     Dates: start: 20080724
  81. CELEBREX [Concomitant]
     Dates: start: 20110504
  82. MULTIVITAMIN [Concomitant]
  83. CALCIUM WITH VITAMIN D [Concomitant]
     Dates: start: 20110504
  84. DIAZEPAM [Concomitant]
     Indication: ANXIETY
     Dates: start: 20110504
  85. PRAMIPEXOLE [Concomitant]
     Dates: start: 20120110
  86. CEPHALEXIN [Concomitant]
     Dosage: 1 CAP PO Q 12 HRS TIME 10 DAYS
     Dates: start: 20120110
  87. ACETAMINOPHEN-HYDROCODONE [Concomitant]
     Dosage: 500 MG-7.5 MG ORAL TABLET 1 TAB TID
     Dates: start: 20120110
  88. METOPROLOL TARTRATE [Concomitant]
     Dates: start: 20120110
  89. LOVASTATIN [Concomitant]
     Indication: BLOOD CHOLESTEROL
     Dates: start: 20120110
  90. LOVASTATIN [Concomitant]
     Indication: BLOOD CHOLESTEROL
  91. FUROSEMIDE [Concomitant]
     Indication: FLUID RETENTION
     Dosage: 20 MG 2 TABS PO QAM AND 2 TABS PO Q PM
     Dates: start: 20120110
  92. FUROSEMIDE [Concomitant]
     Indication: FLUID RETENTION
  93. FAMOTIDINE [Concomitant]
     Dates: start: 20120110
  94. OMEGA 3  POLYUNSATURATED FATTY ACIDS ETHYL ESTERS [Concomitant]
     Dates: start: 20120110
  95. LODINE [Concomitant]
     Indication: BURSITIS
     Dates: start: 199709
  96. PAXIL [Concomitant]
     Dates: start: 199709
  97. CIPROFLOXACIN [Concomitant]
     Dates: start: 20070920
  98. AMOXICILLIN [Concomitant]
     Dates: start: 20070216
  99. ACIPHEX [Concomitant]
     Dates: start: 20061003
  100. TRIAMTERENE [Concomitant]

REACTIONS (20)
  - Osteoporosis [Unknown]
  - Bone formation decreased [Unknown]
  - Intervertebral disc protrusion [Unknown]
  - Intervertebral disc degeneration [Unknown]
  - Lumbar radiculopathy [Unknown]
  - Arthritis [Unknown]
  - Pain [Unknown]
  - Joint dislocation [Unknown]
  - Bone disorder [Unknown]
  - Hand fracture [Unknown]
  - Neck pain [Unknown]
  - Osteoarthritis [Unknown]
  - Spinal osteoarthritis [Unknown]
  - Cervical spinal stenosis [Unknown]
  - Bone pain [Unknown]
  - Bone neoplasm [Unknown]
  - Pneumonia [Unknown]
  - Nasopharyngitis [Unknown]
  - Bronchitis [Unknown]
  - Cervical radiculopathy [Unknown]
